FAERS Safety Report 5734644-1 (Version None)
Quarter: 2008Q2

REPORT INFORMATION
  Report Type: 
  Country: None (occurrence: None)
  Receive Date: 20080512
  Receipt Date: 20080430
  Transmission Date: 20081010
  Serious: Yes (Other)
  Sender: FDA-Public Use
  Company Number: US-ROCHE-432336

PATIENT
  Sex: Female
  Weight: 63.5 kg

DRUGS (1)
  1. ACCUTANE [Suspect]
     Indication: ACNE
     Dosage: 1 X 40MG ON ODD DAYS AND 2 X 40MG ON EVEN DAYS
     Route: 048
     Dates: start: 19950215, end: 19950726

REACTIONS (16)
  - ANOREXIA [None]
  - BACK PAIN [None]
  - BRONCHITIS [None]
  - BULIMIA NERVOSA [None]
  - CHRONIC SINUSITIS [None]
  - DRY EYE [None]
  - EYE DISORDER [None]
  - EYE INFECTION [None]
  - EYE IRRITATION [None]
  - GIANT PAPILLARY CONJUNCTIVITIS [None]
  - INFLAMMATORY BOWEL DISEASE [None]
  - IRRITABLE BOWEL SYNDROME [None]
  - MELANOCYTIC NAEVUS [None]
  - MYALGIA [None]
  - RESPIRATORY TRACT INFECTION [None]
  - VISUAL ACUITY REDUCED [None]
